FAERS Safety Report 5762576-1 (Version None)
Quarter: 2008Q2

REPORT INFORMATION
  Report Type: 
  Country: None (occurrence: None)
  Receive Date: 20080523
  Receipt Date: 20080124
  Transmission Date: 20081010
  Serious: Yes (Other)
  Sender: FDA-Public Use
  Company Number: DSA_61931_2008

PATIENT
  Age: 43 Year
  Sex: Male

DRUGS (1)
  1. MYSOLINE [Suspect]
     Indication: CONVULSION
     Dosage: (DF)

REACTIONS (2)
  - DRUG INEFFECTIVE [None]
  - PHARMACEUTICAL PRODUCT COMPLAINT [None]
